FAERS Safety Report 10178270 (Version 2)
Quarter: 2014Q3

REPORT INFORMATION
  Report Type: Report from Study
  Country: PT (occurrence: PT)
  Receive Date: 20140519
  Receipt Date: 20140903
  Transmission Date: 20150326
  Serious: Yes (Other)
  Sender: FDA-Public Use
  Company Number: PHHY2014PT059203

PATIENT
  Age: 41 Year
  Sex: Male

DRUGS (1)
  1. EXTAVIA [Suspect]
     Active Substance: INTERFERON BETA-1B
     Indication: MULTIPLE SCLEROSIS
     Dosage: 250 UG/ML, QOD
     Route: 058
     Dates: start: 20130429, end: 20140508

REACTIONS (2)
  - Abdominal pain [Recovered/Resolved]
  - Injection site cyst [Recovered/Resolved]

NARRATIVE: CASE EVENT DATE: 201405
